FAERS Safety Report 5417940-7 (Version None)
Quarter: 2007Q3

REPORT INFORMATION
  Report Type: 
  Country: None (occurrence: None)
  Receive Date: 20070817
  Receipt Date: 20070816
  Transmission Date: 20080115
  Serious: Yes (Hospitalization)
  Sender: FDA-Public Use
  Company Number: PHNU2007DE02078

PATIENT
  Age: 75 Year
  Sex: Male

DRUGS (2)
  1. DIOVAN HCT [Suspect]
     Dosage: 0.5-0-0.5 TABLET/DAY
     Route: 048
  2. THEOPHYLLINE [Concomitant]
     Dosage: 375 MG/DAY

REACTIONS (7)
  - ARTHRITIS [None]
  - ASTHENIA [None]
  - BACK PAIN [None]
  - CONJUNCTIVITIS [None]
  - HOSPITALISATION [None]
  - INSOMNIA [None]
  - MYALGIA [None]
